FAERS Safety Report 5623408-5 (Version None)
Quarter: 2008Q1

REPORT INFORMATION
  Report Type: 
  Country: None (occurrence: None)
  Receive Date: 20080212
  Receipt Date: 20080207
  Transmission Date: 20080703
  Serious: Yes (Other)
  Sender: FDA-Public Use
  Company Number: GB-ALLERGAN-0801454US

PATIENT
  Sex: Male

DRUGS (1)
  1. LUMIGAN [Suspect]
     Indication: GLAUCOMA
     Route: 047

REACTIONS (3)
  - ASTHENOPIA [None]
  - EYE PAIN [None]
  - INTRAOCULAR PRESSURE INCREASED [None]
